FAERS Safety Report 17741522 (Version 1)
Quarter: 2020Q2

REPORT INFORMATION
  Report Type: Spontaneous
  Country: IT (occurrence: IT)
  Receive Date: 20200504
  Receipt Date: 20200504
  Transmission Date: 20200714
  Serious: Yes (Other)
  Sender: FDA-Public Use
  Company Number: IT-PFIZER INC-2020173688

PATIENT
  Age: 63 Year
  Sex: Male
  Weight: 95 kg

DRUGS (4)
  1. FLUOXEREN [Suspect]
     Active Substance: FLUOXETINE HYDROCHLORIDE
     Indication: OBSESSIVE-COMPULSIVE DISORDER
     Dosage: UNK
     Dates: start: 20180813
  2. TAVOR (LORAZEPAM) [Suspect]
     Active Substance: LORAZEPAM
     Indication: SEDATION
     Dosage: UNK
     Dates: start: 20170209
  3. DALMADORM [Suspect]
     Active Substance: FLURAZEPAM HYDROCHLORIDE
     Dosage: UNK
     Dates: start: 20171110
  4. ZYPREXA [Suspect]
     Active Substance: OLANZAPINE
     Indication: SCHIZOPHRENIA
     Dosage: UNK
     Dates: start: 20170830

REACTIONS (8)
  - Vision blurred [Unknown]
  - Erectile dysfunction [Unknown]
  - Pseudogynaecomastia [Unknown]
  - Dry mouth [Unknown]
  - Weight increased [Unknown]
  - Dyskinesia [Unknown]
  - Tremor [Unknown]
  - Micturition disorder [Unknown]

NARRATIVE: CASE EVENT DATE: 20190604
